FAERS Safety Report 15213544 (Version 4)
Quarter: 2019Q3

REPORT INFORMATION
  Report Type: Report from Study
  Country: US (occurrence: US)
  Receive Date: 20180730
  Receipt Date: 20190927
  Transmission Date: 20191004
  Serious: Yes (Hospitalization, Other)
  Sender: FDA-Public Use
  Company Number: US-SA-2018SA193546

PATIENT
  Age: 49 Year
  Sex: Female

DRUGS (4)
  1. TERIFLUNOMIDE. [Suspect]
     Active Substance: TERIFLUNOMIDE
     Indication: MULTIPLE SCLEROSIS
     Dosage: UNK UNK, QD
     Route: 048
     Dates: start: 20180816
  2. ALEMTUZUMAB [Suspect]
     Active Substance: ALEMTUZUMAB
     Dosage: 12 MG, QD
     Route: 041
     Dates: start: 20180716, end: 20180716
  3. ALEMTUZUMAB [Suspect]
     Active Substance: ALEMTUZUMAB
     Dosage: 12 MG, QD
     Route: 041
     Dates: start: 20180608, end: 20180608
  4. ALEMTUZUMAB [Suspect]
     Active Substance: ALEMTUZUMAB
     Indication: MULTIPLE SCLEROSIS
     Dosage: 12 MG, QD
     Route: 041
     Dates: start: 20171219, end: 20171219

REACTIONS (22)
  - Cardiac disorder [Unknown]
  - Blood pressure fluctuation [Recovered/Resolved]
  - Headache [Recovered/Resolved]
  - Nausea [Recovered/Resolved]
  - Dyspepsia [Not Recovered/Not Resolved]
  - Unevaluable event [Unknown]
  - Chills [Recovered/Resolved]
  - Cystitis [Unknown]
  - Renal disorder [Unknown]
  - Bundle branch block right [Not Recovered/Not Resolved]
  - Blood lactic acid increased [Recovered/Resolved]
  - Septic shock [Recovered/Resolved]
  - Feeling abnormal [Recovered/Resolved]
  - Feeling hot [Recovered/Resolved]
  - Fatigue [Not Recovered/Not Resolved]
  - Product dose omission [Unknown]
  - Ejection fraction decreased [Recovering/Resolving]
  - Feeling abnormal [Unknown]
  - Clostridium difficile infection [Recovered/Resolved]
  - Gait disturbance [Recovered/Resolved]
  - Cardiac failure congestive [Recovering/Resolving]
  - Sepsis [Unknown]

NARRATIVE: CASE EVENT DATE: 20180604
